FAERS Safety Report 20510052 (Version 2)
Quarter: 2022Q1

REPORT INFORMATION
  Report Type: Spontaneous
  Country: US (occurrence: US)
  Receive Date: 20220224
  Receipt Date: 20220315
  Transmission Date: 20220424
  Serious: Yes (Death, Life-Threatening, Hospitalization, Other)
  Sender: FDA-Public Use
  Company Number: US-drreddys-SPO/USA/22/0147113

PATIENT
  Age: 20 Year
  Sex: Male

DRUGS (5)
  1. HEPARIN SODIUM [Suspect]
     Active Substance: HEPARIN SODIUM
     Indication: Hepatic vein thrombosis
  2. NIVOLUMAB [Concomitant]
     Active Substance: NIVOLUMAB
     Indication: Hepatic vein thrombosis
  3. NIVOLUMAB [Concomitant]
     Active Substance: NIVOLUMAB
     Indication: Metastatic ocular melanoma
  4. IPILIMUMAB [Concomitant]
     Active Substance: IPILIMUMAB
     Indication: Metastatic ocular melanoma
  5. IPILIMUMAB [Concomitant]
     Active Substance: IPILIMUMAB
     Indication: Hepatic vein thrombosis

REACTIONS (2)
  - Small intestinal haemorrhage [Fatal]
  - Shock haemorrhagic [Fatal]
